FAERS Safety Report 16631619 (Version 2)
Quarter: 2019Q3

REPORT INFORMATION
  Report Type: Spontaneous
  Country: FR (occurrence: FR)
  Receive Date: 20190725
  Receipt Date: 20190801
  Transmission Date: 20191004
  Serious: Yes (Death, Life-Threatening, Hospitalization, Other)
  Sender: FDA-Public Use
  Company Number: FR-BAUSCH-BL-2019-021215

PATIENT
  Age: 58 Year
  Sex: Male

DRUGS (5)
  1. INFLIXIMAB [Concomitant]
     Active Substance: INFLIXIMAB
     Indication: COLITIS ULCERATIVE
     Dates: start: 201012
  2. FLUOROURACIL. [Suspect]
     Active Substance: FLUOROURACIL
     Indication: LINITIS PLASTICA
     Route: 065
  3. FOLINIC ACID [Suspect]
     Active Substance: LEUCOVORIN
     Indication: LINITIS PLASTICA
     Route: 065
  4. MERCAPTOPURINE. [Concomitant]
     Active Substance: MERCAPTOPURINE
     Indication: COLITIS ULCERATIVE
     Dates: start: 201012
  5. OXALIPLATIN. [Suspect]
     Active Substance: OXALIPLATIN
     Indication: LINITIS PLASTICA
     Route: 065

REACTIONS (2)
  - Febrile neutropenia [Fatal]
  - Septic shock [Fatal]
